FAERS Safety Report 9416632 (Version 2)
Quarter: 2013Q4

REPORT INFORMATION
  Report Type: Spontaneous
  Country: GB (occurrence: GB)
  Receive Date: 20130724
  Receipt Date: 20131106
  Transmission Date: 20140711
  Serious: Yes (Other)
  Sender: FDA-Public Use
  Company Number: GB-TEVA-419606ISR

PATIENT
  Age: 70 Year
  Sex: Male
  Weight: 80 kg

DRUGS (7)
  1. RAMIPRIL [Suspect]
     Indication: HYPERTENSION
     Dosage: 1.25 MILLIGRAM DAILY;
     Route: 048
     Dates: start: 20120803, end: 20130628
  2. RAMIPRIL [Suspect]
     Dates: start: 20130503
  3. OMEPRAZOLE [Suspect]
     Dosage: GASTRO-RESISTANT CAPSULE, STARTED AS TWO DAILY, REDUCED TO ONE DAILY FROM 28/JUN/13
     Route: 048
     Dates: start: 20121214
  4. BISOPROLOL [Concomitant]
     Indication: ATRIAL FIBRILLATION
     Dosage: NOT STOPPED
     Route: 048
     Dates: start: 20120803
  5. OMEPRAZOLE [Concomitant]
     Dosage: 4 DOSAGE FORMS DAILY; NOT STOPPED. TWO TWICE DAILY. FORM OF ADMIN: GASTRO-RESISTANT TABLET
     Route: 048
     Dates: start: 20121214
  6. ASPIRIN [Concomitant]
     Dosage: 75 MILLIGRAM DAILY; NOT STOPPED
     Route: 048
     Dates: start: 20120716
  7. MONTELUKAST [Concomitant]
     Dosage: 10 MILLIGRAM DAILY;

REACTIONS (4)
  - Erythema [Recovering/Resolving]
  - Facial pain [Recovering/Resolving]
  - Swelling face [Recovering/Resolving]
  - Skin exfoliation [Not Recovered/Not Resolved]
